FAERS Safety Report 6933096-3 (Version None)
Quarter: 2010Q3

REPORT INFORMATION
  Report Type: 
  Country: None (occurrence: None)
  Receive Date: 20100817
  Receipt Date: 20100805
  Transmission Date: 20110219
  Serious: Yes (Hospitalization, Disabling, Other)
  Sender: FDA-Public Use
  Company Number: 2010SP007781

PATIENT
  Age: 39 Year
  Sex: Female
  Weight: 79.3795 kg

DRUGS (5)
  1. NUVARING [Suspect]
     Indication: MENSTRUAL DISORDER
     Dosage: QM; VAG
     Route: 067
     Dates: start: 20061001, end: 20090324
  2. AMBIEN [Suspect]
     Indication: TACHYCARDIA
     Dates: start: 20090301
  3. UNSPECIFIED SUPPLEMENT [Concomitant]
  4. MULTI-VITAMIN [Concomitant]
  5. ZYRTEC [Concomitant]

REACTIONS (21)
  - ABDOMINAL DISTENSION [None]
  - ABDOMINAL PAIN UPPER [None]
  - BASAL CELL CARCINOMA [None]
  - BLOOD TRIGLYCERIDES ABNORMAL [None]
  - BREAST CYST [None]
  - CHEST DISCOMFORT [None]
  - CHOLELITHIASIS [None]
  - DEEP VEIN THROMBOSIS [None]
  - GALLBLADDER DISORDER [None]
  - HEPATIC CYST [None]
  - IMPAIRED WORK ABILITY [None]
  - INSOMNIA [None]
  - MULTIPLE INJURIES [None]
  - OVARIAN DISORDER [None]
  - PAIN [None]
  - PHLEBITIS [None]
  - PULMONARY EMBOLISM [None]
  - SPINAL OSTEOARTHRITIS [None]
  - TACHYCARDIA [None]
  - UTERINE LEIOMYOMA [None]
  - WEIGHT INCREASED [None]
